FAERS Safety Report 4439335-5 (Version None)
Quarter: 2004Q3

REPORT INFORMATION
  Report Type: 
  Country: None (occurrence: None)
  Receive Date: 20040831
  Receipt Date: 20040820
  Transmission Date: 20050211
  Serious: No
  Sender: FDA-Public Use
  Company Number: TPA2004A01042

PATIENT

DRUGS (1)
  1. ACTOS [Suspect]

REACTIONS (2)
  - MEDICATION ERROR [None]
  - PHARMACEUTICAL PRODUCT COMPLAINT [None]
